FAERS Safety Report 4744610-0 (Version None)
Quarter: 2005Q3

REPORT INFORMATION
  Report Type: 
  Country: None (occurrence: None)
  Receive Date: 20050809
  Receipt Date: 20040806
  Transmission Date: 20060218
  Serious: Yes (Death, Life-Threatening, Hospitalization)
  Sender: FDA-Public Use
  Company Number: 04R-163-0270526-00

PATIENT
  Age: 2 Day
  Sex: Male
  Weight: 0.855 kg

DRUGS (3)
  1. SURVANTA [Suspect]
     Indication: RESPIRATORY DISTRESS
     Dates: start: 20020717, end: 20020720
  2. PHENOBARBITAL SODIUM 100MG CAP [Concomitant]
  3. INDOMETHACIN [Concomitant]

REACTIONS (4)
  - DEATH [None]
  - INTRAVENTRICULAR HAEMORRHAGE NEONATAL [None]
  - PNEUMOTHORAX [None]
  - PULMONARY HAEMORRHAGE [None]
